FAERS Safety Report 4964532-X (Version None)
Quarter: 2006Q2

REPORT INFORMATION
  Report Type: 
  Country: None (occurrence: None)
  Receive Date: 20060406
  Receipt Date: 20060213
  Transmission Date: 20061013
  Serious: Yes (Life-Threatening, Hospitalization, Disabling, Other)
  Sender: FDA-Public Use
  Company Number: GB-GLAXOSMITHKLINE-B0411193A

PATIENT
  Age: 53 Year
  Sex: Female
  Weight: 81 kg

DRUGS (4)
  1. ZYBAN [Suspect]
     Indication: HEADACHE
     Dosage: 1TAB PER DAY
     Route: 048
     Dates: start: 20060112, end: 20060121
  2. ELTROXIN [Concomitant]
     Indication: HYPOTHYROIDISM
     Dosage: 50MG PER DAY
     Route: 048
     Dates: start: 19990618
  3. BENDROFLUMETHIAZIDE [Concomitant]
     Indication: HYPERTENSION
     Dosage: 2.5MG PER DAY
     Route: 048
     Dates: start: 20050211
  4. IRBESARTAN [Concomitant]
     Indication: HYPERTENSION
     Dosage: 75MG TWICE PER DAY
     Route: 048
     Dates: start: 20050407

REACTIONS (3)
  - HEADACHE [None]
  - TRANSIENT ISCHAEMIC ATTACK [None]
  - VISION BLURRED [None]
